FAERS Safety Report 8211064-1 (Version None)
Quarter: 2012Q1

REPORT INFORMATION
  Report Type: 
  Country: None (occurrence: None)
  Receive Date: 20120315
  Receipt Date: 20120312
  Transmission Date: 20120608
  Serious: Yes (Hospitalization, Other)
  Sender: FDA-Public Use
  Company Number: PHHY2012NL021621

PATIENT
  Sex: Male

DRUGS (4)
  1. ZOMETA [Suspect]
     Dosage: 4 MG/100 1 INFUSION PER 21 DAYS
     Route: 042
     Dates: start: 20120123
  2. ZOMETA [Suspect]
     Indication: METASTATIC BRONCHIAL CARCINOMA
     Dosage: 4 MG/100 1 INFUSION PER 21 DAYS
     Route: 042
  3. ZOMETA [Suspect]
     Dosage: 4 MG/100 1 INFUSION PER 21 DAYS
     Route: 042
     Dates: start: 20110222
  4. ZOMETA [Suspect]
     Dosage: 4 MG/100 1 INFUSION PER 21 DAYS
     Route: 042
     Dates: start: 20120214

REACTIONS (1)
  - TERMINAL STATE [None]
